FAERS Safety Report 24401933 (Version 1)
Quarter: 2024Q4

REPORT INFORMATION
  Report Type: Spontaneous
  Country: US (occurrence: US)
  Receive Date: 20241007
  Receipt Date: 20241007
  Transmission Date: 20250115
  Serious: No
  Sender: RANBAXY
  Company Number: US-SUN PHARMACEUTICAL INDUSTRIES LTD-2023R1-416871

PATIENT
  Sex: Female

DRUGS (1)
  1. CEQUA [Suspect]
     Active Substance: CYCLOSPORINE
     Indication: Dry eye
     Dosage: UNK (MORNING AND NIGHT)
     Route: 047

REACTIONS (5)
  - Hordeolum [Unknown]
  - Drug ineffective [Unknown]
  - Frustration tolerance decreased [Unknown]
  - Cyst [Unknown]
  - Inability to afford medication [Unknown]
